FAERS Safety Report 5635706-X (Version None)
Quarter: 2008Q1

REPORT INFORMATION
  Report Type: 
  Country: None (occurrence: None)
  Receive Date: 20080220
  Receipt Date: 20080206
  Transmission Date: 20080703
  Serious: Yes (Disabling)
  Sender: FDA-Public Use
  Company Number: GXKR2008GB01448

PATIENT
  Age: 48 Year
  Sex: Female
  Weight: 111 kg

DRUGS (6)
  1. SIMVASTATIN [Suspect]
     Indication: HYPERCHOLESTEROLAEMIA
     Dosage: 40 MG, ORAL
     Route: 048
     Dates: start: 20060907, end: 20071205
  2. ACETYLSALICYLIC ACID SRT [Concomitant]
  3. ESTRADIOL [Concomitant]
  4. METFORMIN HCL [Concomitant]
  5. NORETHISTERONE (NORETHISTERONE) [Concomitant]
  6. SALBUTAMOL SULFATE (SALBUTAMOL SULFATE) [Concomitant]

REACTIONS (5)
  - CONFUSIONAL STATE [None]
  - DEPRESSION [None]
  - DISTURBANCE IN ATTENTION [None]
  - MEMORY IMPAIRMENT [None]
  - POLYURIA [None]
